FAERS Safety Report 24272221 (Version 1)
Quarter: 2024Q3

REPORT INFORMATION
  Report Type: Spontaneous
  Country: CN (occurrence: CN)
  Receive Date: 20240902
  Receipt Date: 20240902
  Transmission Date: 20241017
  Serious: Yes (Other)
  Sender: BAXTER
  Company Number: None

PATIENT
  Age: 6 Year
  Sex: Female
  Weight: 20.7 kg

DRUGS (3)
  1. CYCLOPHOSPHAMIDE [Suspect]
     Active Substance: CYCLOPHOSPHAMIDE
     Indication: Acute lymphocytic leukaemia
     Dosage: 0.81 G, ONE TIME IN ONE DAY, DILUTED WITH 250 ML GLUCOSE AND SODIUM CHLORIDE (4:1)
     Route: 041
     Dates: start: 20240513, end: 20240513
  2. DEXTROSE\SODIUM CHLORIDE [Suspect]
     Active Substance: DEXTROSE\SODIUM CHLORIDE
     Indication: Medication dilution
     Dosage: 250 ML (4:1), ONE TIME IN ONE DAY, USED TO DILUTE CYCLOPHOSPHAMIDE 0.81 G
     Route: 041
     Dates: start: 20240513, end: 20240513
  3. MERCAPTOPURINE [Suspect]
     Active Substance: MERCAPTOPURINE
     Indication: Acute lymphocytic leukaemia
     Dosage: 40 MG, ONE TIME IN ONE DAY (QN)
     Route: 048
     Dates: start: 20240513, end: 20240526

REACTIONS (1)
  - Myelosuppression [Recovering/Resolving]

NARRATIVE: CASE EVENT DATE: 20240521
